FAERS Safety Report 13046770 (Version 2)
Quarter: 2017Q1

REPORT INFORMATION
  Report Type: Report from Study
  Country: CA (occurrence: CA)
  Receive Date: 20161220
  Receipt Date: 20170212
  Transmission Date: 20170428
  Serious: Yes (Hospitalization)
  Sender: FDA-Public Use
  Company Number: CA-BIOGEN-2016BI00333022

PATIENT
  Age: 56 Year
  Sex: Female

DRUGS (1)
  1. TYSABRI [Suspect]
     Active Substance: NATALIZUMAB
     Indication: MULTIPLE SCLEROSIS
     Dosage: INFUSED OVER 1 HOUR
     Route: 042
     Dates: start: 20121228

REACTIONS (3)
  - Nephrolithiasis [Recovered/Resolved]
  - Dysuria [Recovered/Resolved]
  - Incontinence [Recovered/Resolved]

NARRATIVE: CASE EVENT DATE: 20161203
